FAERS Safety Report 9521697 (Version 1)
Quarter: 2013Q1

REPORT INFORMATION
  Report Type: Spontaneous
  Country: US (occurrence: None)
  Receive Date: 20130305
  Receipt Date: 20130305
  Transmission Date: 20140127
  Serious: Yes (Other)
  Sender: FDA-Public Use
  Company Number: 163-21880-12080192

PATIENT
  Age: 78 Year
  Sex: Male

DRUGS (7)
  1. REVLIMID [Suspect]
     Indication: PLASMA CELL MYELOMA
     Dosage: 14 IN 14 D
     Route: 048
     Dates: start: 20120313
  2. FUROSEMIDE (FUROSEMIDE) (UNKNOWN) [Concomitant]
  3. ENALAPRIL (ENALAPRIL) (UNKNOWN) [Concomitant]
  4. TAMSULOSIN (TAMSULOSIN) (UNKNOWN) [Concomitant]
  5. TRAMADOL-ACETAMINOPHEN (UNKNOWN) [Concomitant]
  6. MAGNESIUM OXIDE (MAGNESIUM OXIDE) (UNKNOWN) [Concomitant]
  7. METHYLPREDNISOLONE (METHYLPREDNISOLONE) (UNKNOWN) [Concomitant]

REACTIONS (1)
  - Diarrhoea [None]
